FAERS Safety Report 21532417 (Version 1)
Quarter: 2022Q4

REPORT INFORMATION
  Report Type: Spontaneous
  Country: US (occurrence: US)
  Receive Date: 20221101
  Receipt Date: 20221101
  Transmission Date: 20230113
  Serious: No
  Sender: FDA-Public Use
  Company Number: US-BAUSCH-BL-2022-024022

PATIENT
  Age: 66 Year
  Sex: Female
  Weight: 43.130 kg

DRUGS (7)
  1. PRIMIDONE [Suspect]
     Active Substance: PRIMIDONE
     Indication: Epilepsy
     Dosage: YEARS AGO
     Route: 048
  2. PRIMIDONE [Suspect]
     Active Substance: PRIMIDONE
     Route: 048
     Dates: start: 2021, end: 2021
  3. MYSOLINE [Suspect]
     Active Substance: PRIMIDONE
     Indication: Product used for unknown indication
     Route: 065
  4. MYSOLINE [Suspect]
     Active Substance: PRIMIDONE
     Route: 065
     Dates: end: 2021
  5. MYSOLINE [Suspect]
     Active Substance: PRIMIDONE
     Route: 065
     Dates: start: 2021
  6. TEGRETOL [Concomitant]
     Active Substance: CARBAMAZEPINE
     Indication: Product used for unknown indication
     Route: 065
  7. VITAMINS [Concomitant]
     Active Substance: VITAMINS
     Indication: Product used for unknown indication
     Route: 065

REACTIONS (5)
  - Tremor [Unknown]
  - Motor dysfunction [Unknown]
  - Withdrawal syndrome [Unknown]
  - Aura [Recovered/Resolved]
  - Product substitution issue [Unknown]
